FAERS Safety Report 17223153 (Version 4)
Quarter: 2020Q1

REPORT INFORMATION
  Report Type: Spontaneous
  Country: US (occurrence: US)
  Receive Date: 20200102
  Receipt Date: 20200313
  Transmission Date: 20200409
  Serious: No
  Sender: FDA-Public Use
  Company Number: US-GLAXOSMITHKLINE-US2019234375

PATIENT
  Sex: Female
  Weight: 120.64 kg

DRUGS (1)
  1. NUCALA [Suspect]
     Active Substance: MEPOLIZUMAB
     Indication: PRODUCT USED FOR UNKNOWN INDICATION
     Dosage: UNK
     Route: 058
     Dates: start: 201912

REACTIONS (3)
  - Exposure via skin contact [Not Recovered/Not Resolved]
  - Product complaint [Unknown]
  - Product dose omission [Not Recovered/Not Resolved]
